FAERS Safety Report 13342816 (Version 2)
Quarter: 2017Q2

REPORT INFORMATION
  Report Type: Spontaneous
  Country: US (occurrence: US)
  Receive Date: 20170316
  Receipt Date: 20170405
  Transmission Date: 20170830
  Serious: Yes (Hospitalization, Other)
  Sender: FDA-Public Use
  Company Number: US-BRISTOL-MYERS SQUIBB COMPANY-BMS-2017-021398

PATIENT
  Age: 68 Year
  Sex: Female
  Weight: 49.8 kg

DRUGS (1)
  1. YERVOY [Suspect]
     Active Substance: IPILIMUMAB
     Indication: MALIGNANT MELANOMA
     Dosage: UNK
     Route: 042
     Dates: start: 201611, end: 20170123

REACTIONS (10)
  - Typhoid fever [Unknown]
  - Asthenia [Unknown]
  - Dry mouth [Unknown]
  - Pyrexia [Unknown]
  - Pruritus [Unknown]
  - Insomnia [Unknown]
  - Oropharyngeal pain [Unknown]
  - Dehydration [Unknown]
  - Weight decreased [Unknown]
  - Ageusia [Unknown]

NARRATIVE: CASE EVENT DATE: 201703
